FAERS Safety Report 25175470 (Version 2)
Quarter: 2025Q2

REPORT INFORMATION
  Report Type: Report from Study
  Country: US (occurrence: US)
  Receive Date: 20250408
  Receipt Date: 20250417
  Transmission Date: 20250716
  Serious: Yes (Hospitalization, Other)
  Sender: ABBVIE
  Company Number: US-ABBVIE-6209517

PATIENT
  Age: 69 Year
  Sex: Female
  Weight: 81.646 kg

DRUGS (3)
  1. RINVOQ [Suspect]
     Active Substance: UPADACITINIB
     Indication: Rheumatoid arthritis
     Route: 048
     Dates: start: 2022, end: 202502
  2. XARELTO [Concomitant]
     Active Substance: RIVAROXABAN
     Indication: Atrial fibrillation
  3. ATORVASTATIN [Concomitant]
     Active Substance: ATORVASTATIN
     Indication: Blood cholesterol

REACTIONS (7)
  - Skin cancer [Recovered/Resolved]
  - Osteoarthritis [Not Recovered/Not Resolved]
  - Post procedural infection [Unknown]
  - Skin cancer [Not Recovered/Not Resolved]
  - Pyrexia [Unknown]
  - Gait disturbance [Recovering/Resolving]
  - Subcutaneous abscess [Not Recovered/Not Resolved]

NARRATIVE: CASE EVENT DATE: 20230101
